FAERS Safety Report 8009885 (Version 2)
Quarter: 2013Q4

REPORT INFORMATION
  Report Type: Spontaneous
  Country: US (occurrence: US)
  Receive Date: 20110627
  Receipt Date: 20131128
  Transmission Date: 20140711
  Serious: No
  Sender: FDA-Public Use
  Company Number: US-JNJFOC-20110609769

PATIENT
  Age: 45 Year
  Sex: Male
  Weight: 86.18 kg

DRUGS (2)
  1. DURAGESIC [Suspect]
     Indication: BACK PAIN
     Dosage: (100 UG/HR + 100 UG/HR)
     Route: 062
     Dates: start: 201006, end: 201006
  2. DURAGESIC [Suspect]
     Indication: BACK PAIN
     Route: 062
     Dates: start: 201006

REACTIONS (2)
  - Therapeutic response decreased [Recovered/Resolved]
  - Wrong technique in drug usage process [Recovered/Resolved]
